FAERS Safety Report 7779108-9 (Version None)
Quarter: 2011Q3

REPORT INFORMATION
  Report Type: 
  Country: None (occurrence: None)
  Receive Date: 20110926
  Receipt Date: 20110902
  Transmission Date: 20111222
  Serious: No
  Sender: FDA-Public Use
  Company Number: US-ROXANE LABORATORIES, INC.-2011-RO-01069RO

PATIENT
  Age: 78 Year
  Sex: Male

DRUGS (3)
  1. PREDNISONE [Suspect]
  2. CALCITRIOL [Concomitant]
  3. CALCIUM ACETATE [Suspect]

REACTIONS (2)
  - DRUG INEFFECTIVE [None]
  - CALCIUM DEFICIENCY [None]
